FAERS Safety Report 21509577 (Version 3)
Quarter: 2022Q4

REPORT INFORMATION
  Report Type: Spontaneous
  Country: US (occurrence: US)
  Receive Date: 20221026
  Receipt Date: 20221205
  Transmission Date: 20230112
  Serious: Yes (Hospitalization, Other)
  Sender: FDA-Public Use
  Company Number: US-EXELIXIS-CABO-22056593

PATIENT
  Age: 75 Year
  Sex: Male
  Weight: 88.209 kg

DRUGS (4)
  1. OPDIVO [Suspect]
     Active Substance: NIVOLUMAB
     Indication: Renal cancer
     Dosage: UNK
     Route: 065
  2. CABOMETYX [Suspect]
     Active Substance: CABOZANTINIB S-MALATE
     Indication: Renal cancer
     Dosage: 40 MG (TAKE 1 TABLET BY MOUTH ONCE DAILY FOR 3 WEEKS ON, 1 WEEK OFF)
     Route: 048
     Dates: start: 20210902, end: 20221002
  3. CABOMETYX [Suspect]
     Active Substance: CABOZANTINIB S-MALATE
     Dosage: 40 MG (TAKE 1 TABLET BY MOUTH ONCE DAILY FOR 3 WEEKS ON, 1 WEEK OFF)
     Route: 048
     Dates: start: 20221016
  4. CORTEF [Suspect]
     Active Substance: HYDROCORTISONE
     Indication: Adrenal insufficiency
     Route: 048

REACTIONS (9)
  - White blood cell count decreased [Unknown]
  - Hypothyroidism [Unknown]
  - Blood pressure systolic increased [Unknown]
  - Post procedural complication [Unknown]
  - Renal cyst ruptured [Unknown]
  - Adrenal insufficiency [Unknown]
  - Oedema [Recovering/Resolving]
  - Hernia [Unknown]
  - Intestinal obstruction [Unknown]

NARRATIVE: CASE EVENT DATE: 20221001
